FAERS Safety Report 10340212 (Version 7)
Quarter: 2015Q1

REPORT INFORMATION
  Report Type: Spontaneous
  Country: US (occurrence: US)
  Receive Date: 20140724
  Receipt Date: 20150129
  Transmission Date: 20150720
  Serious: No
  Sender: FDA-Public Use
  Company Number: US-PFIZER INC-2014202600

PATIENT
  Sex: Female
  Weight: 84.35 kg

DRUGS (8)
  1. IRON [Concomitant]
     Active Substance: IRON
     Dosage: UNK
  2. VITAMIN E [Concomitant]
     Active Substance: .ALPHA.-TOCOPHEROL
     Dosage: UNK
  3. SUTENT [Suspect]
     Active Substance: SUNITINIB MALATE
     Indication: HEPATIC CANCER
     Dosage: 12.5MG THREE TIMES DAILY - NO TREATMENT BREAKS
     Dates: start: 201407
  4. SUTENT [Suspect]
     Active Substance: SUNITINIB MALATE
     Dosage: 37.5 MG, 1X/DAY (THREE 12.5MG PILLS AT ONCE IN THE MORNING)
  5. SUTENT [Suspect]
     Active Substance: SUNITINIB MALATE
     Dosage: 12.5 MG, (TAKING ONE 12.5MG PILL)
  6. ACTONEL [Concomitant]
     Active Substance: RISEDRONATE SODIUM
     Dosage: UNK
  7. VITAMIN D [Concomitant]
     Active Substance: CHOLECALCIFEROL
     Dosage: UNK
  8. AFINITOR [Suspect]
     Active Substance: EVEROLIMUS
     Indication: HEPATIC CANCER
     Dosage: UNK
     Dates: start: 201403

REACTIONS (14)
  - Anxiety [Unknown]
  - Activities of daily living impaired [Not Recovered/Not Resolved]
  - Back pain [Unknown]
  - Nervousness [Unknown]
  - Hot flush [Unknown]
  - Fatigue [Unknown]
  - Tremor [Recovered/Resolved]
  - Blood pressure increased [Unknown]
  - Glossodynia [Not Recovered/Not Resolved]
  - Haemoglobin decreased [Unknown]
  - Hyperhidrosis [Unknown]
  - Hepatic cancer [Unknown]
  - Product use issue [Unknown]
  - Disease progression [Unknown]

NARRATIVE: CASE EVENT DATE: 2014
